FAERS Safety Report 17077870 (Version 3)
Quarter: 2020Q1

REPORT INFORMATION
  Report Type: Spontaneous
  Country: US (occurrence: US)
  Receive Date: 20191126
  Receipt Date: 20200110
  Transmission Date: 20200409
  Serious: No
  Sender: FDA-Public Use
  Company Number: US-VERTEX PHARMACEUTICALS-2019-011651

PATIENT
  Sex: Female
  Weight: 66 kg

DRUGS (8)
  1. VITAMIN D [COLECALCIFEROL] [Concomitant]
     Active Substance: CHOLECALCIFEROL
     Dosage: UNK, 0.4 MG
  2. VITAMIN B [Concomitant]
     Active Substance: VITAMIN B
  3. KALYDECO [Suspect]
     Active Substance: IVACAFTOR
     Indication: CYSTIC FIBROSIS
     Dosage: 150 MG, BID
     Route: 048
     Dates: start: 2015
  4. SODIUM CHLORIDE. [Concomitant]
     Active Substance: SODIUM CHLORIDE
     Dosage: 4 MILLILITER, BID
  5. ZYRTEC [Concomitant]
     Active Substance: CETIRIZINE HYDROCHLORIDE
     Dosage: 10 MG CAPSULE
  6. CALCIUM [Concomitant]
     Active Substance: CALCIUM
     Dosage: UNK, 500 MG
  7. FISH OIL [Concomitant]
     Active Substance: FISH OIL
     Dosage: UNK, 100-150 MG
  8. PULMOZYME [Concomitant]
     Active Substance: DORNASE ALFA
     Dosage: 2.5 MG, QD (DAILY)

REACTIONS (3)
  - Gastrointestinal disorder [Unknown]
  - Staphylococcal infection [Unknown]
  - Infection [Unknown]
